FAERS Safety Report 15589472 (Version 3)
Quarter: 2018Q4

REPORT INFORMATION
  Report Type: Report from Study
  Country: CA (occurrence: CA)
  Receive Date: 20181106
  Receipt Date: 20181206
  Transmission Date: 20190205
  Serious: Yes (Death, Hospitalization, Other)
  Sender: FDA-Public Use
  Company Number: CA-ROCHE-1634643

PATIENT
  Age: 67 Year
  Sex: Male
  Weight: 70 kg

DRUGS (15)
  1. ROSUVASTATIN. [Concomitant]
     Active Substance: ROSUVASTATIN
  2. ESBRIET [Suspect]
     Active Substance: PIRFENIDONE
     Route: 048
     Dates: start: 201510, end: 201808
  3. ESBRIET [Suspect]
     Active Substance: PIRFENIDONE
     Dosage: DAILY
     Route: 048
     Dates: start: 2015
  4. PLAVIX [Suspect]
     Active Substance: CLOPIDOGREL BISULFATE
     Indication: PRODUCT USED FOR UNKNOWN INDICATION
     Route: 065
  5. ESBRIET [Suspect]
     Active Substance: PIRFENIDONE
     Route: 048
  6. EFFEXOR [Concomitant]
     Active Substance: VENLAFAXINE HYDROCHLORIDE
     Route: 065
  7. RABEPRAZOLE [Concomitant]
     Active Substance: RABEPRAZOLE
     Route: 065
  8. ESBRIET [Suspect]
     Active Substance: PIRFENIDONE
     Route: 048
     Dates: start: 20150917
  9. METFORMIN [Concomitant]
     Active Substance: METFORMIN HYDROCHLORIDE
     Route: 065
  10. GLICLAZIDE [Concomitant]
     Active Substance: GLICLAZIDE
     Route: 065
  11. ESBRIET [Suspect]
     Active Substance: PIRFENIDONE
     Dosage: DAILY
     Route: 048
     Dates: start: 201509
  12. ESBRIET [Suspect]
     Active Substance: PIRFENIDONE
     Dosage: DAILY
     Route: 048
     Dates: start: 2018
  13. ESBRIET [Suspect]
     Active Substance: PIRFENIDONE
     Indication: IDIOPATHIC PULMONARY FIBROSIS
     Route: 048
     Dates: start: 20150912
  14. BUPROPION. [Concomitant]
     Active Substance: BUPROPION
  15. ONGLYZA [Concomitant]
     Active Substance: SAXAGLIPTIN HYDROCHLORIDE

REACTIONS (26)
  - Erythema [Recovered/Resolved]
  - Pulmonary function test abnormal [Unknown]
  - Cough [Recovering/Resolving]
  - Respiratory failure [Fatal]
  - Arrhythmia [Unknown]
  - Neutropenia [Recovered/Resolved]
  - Dyspnoea exertional [Not Recovered/Not Resolved]
  - Dry skin [Unknown]
  - Oxygen saturation decreased [Fatal]
  - Cardiac disorder [Unknown]
  - Oxygen saturation decreased [Unknown]
  - Fatigue [Recovering/Resolving]
  - Blood glucose increased [Unknown]
  - Fatigue [Not Recovered/Not Resolved]
  - Asthenia [Unknown]
  - Loss of consciousness [Fatal]
  - Weight decreased [Unknown]
  - Skin exfoliation [Unknown]
  - White blood cell count decreased [Unknown]
  - Nasopharyngitis [Unknown]
  - Eye pruritus [Unknown]
  - Productive cough [Recovering/Resolving]
  - Oxygen saturation abnormal [Recovering/Resolving]
  - Coronary arterial stent insertion [Unknown]
  - General physical health deterioration [Unknown]
  - Dyspnoea [Fatal]

NARRATIVE: CASE EVENT DATE: 20150912
